FAERS Safety Report 5504183-1 (Version None)
Quarter: 2007Q4

REPORT INFORMATION
  Report Type: 
  Country: None (occurrence: None)
  Receive Date: 20071101
  Receipt Date: 20071026
  Transmission Date: 20080405
  Serious: Yes (Death, Other)
  Sender: FDA-Public Use
  Company Number: B0485300A

PATIENT
  Age: 72 Year
  Sex: Male

DRUGS (1)
  1. ARIXTRA [Suspect]
     Indication: THROMBOSIS PROPHYLAXIS
     Dosage: 2.5MG PER DAY
     Route: 058
     Dates: start: 20070816, end: 20070819

REACTIONS (9)
  - ATELECTASIS [None]
  - DISSEMINATED INTRAVASCULAR COAGULATION [None]
  - HYPOCOAGULABLE STATE [None]
  - OXYGEN SATURATION DECREASED [None]
  - PNEUMONIA [None]
  - PUNCTURE SITE HAEMORRHAGE [None]
  - RESPIRATORY ARREST [None]
  - RESPIRATORY DISORDER [None]
  - RESPIRATORY TRACT CONGESTION [None]
